FAERS Safety Report 10069381 (Version 1)
Quarter: 2014Q2

REPORT INFORMATION
  Report Type: Spontaneous
  Country: CH (occurrence: CH)
  Receive Date: 20140410
  Receipt Date: 20140410
  Transmission Date: 20141212
  Serious: Yes (Hospitalization, Other)
  Sender: FDA-Public Use
  Company Number: CH-009507513-1404CHE002964

PATIENT
  Age: 46 Year
  Sex: Female

DRUGS (2)
  1. REMERON [Suspect]
     Dosage: 40 DOSAGE FORMS AT ONCE
     Route: 048
     Dates: start: 20140212, end: 20140212
  2. MEFENAMIC ACID [Suspect]
     Dosage: UNK
     Route: 048
     Dates: start: 20140212, end: 20140212

REACTIONS (6)
  - Suicide attempt [Recovered/Resolved]
  - Vomiting [Recovered/Resolved]
  - Somnolence [Recovered/Resolved]
  - Disorientation [Recovered/Resolved]
  - Tachycardia [Recovered/Resolved]
  - Intentional overdose [Unknown]
